FAERS Safety Report 7455622-0 (Version None)
Quarter: 2011Q2

REPORT INFORMATION
  Report Type: 
  Country: None (occurrence: None)
  Receive Date: 20110503
  Receipt Date: 20110428
  Transmission Date: 20111010
  Serious: Yes (Hospitalization)
  Sender: FDA-Public Use
  Company Number: FR-ROCHE-774082

PATIENT
  Sex: Male

DRUGS (11)
  1. LASILIX [Concomitant]
  2. DIFFU K [Concomitant]
  3. XATRAL [Concomitant]
  4. DIFFU K [Concomitant]
  5. TOPALGIC [Concomitant]
  6. NOVORAPID [Concomitant]
     Dosage: 8 UNIT  IN MORNING, 10 UNITS AT NOON AND 6 UNITS IN EVENING
  7. PEGINTERFERON ALFA-2A [Suspect]
     Indication: HEPATITIS C
     Route: 065
     Dates: start: 20101106
  8. RIBAVIRIN [Suspect]
     Indication: HEPATITIS C
     Route: 048
  9. ATACAND [Concomitant]
  10. PROSCAR [Concomitant]
  11. MOVIPREP [Concomitant]
     Dosage: 1 SACHET

REACTIONS (2)
  - THROMBOCYTOPENIA [None]
  - GINGIVAL BLEEDING [None]
